FAERS Safety Report 21683757 (Version 1)
Quarter: 2022Q4

REPORT INFORMATION
  Report Type: Spontaneous
  Country: US (occurrence: US)
  Receive Date: 20221205
  Receipt Date: 20221205
  Transmission Date: 20230113
  Serious: Yes (Other)
  Sender: FDA-Public Use
  Company Number: US-AMGEN-USASP2022206351

PATIENT
  Age: 62 Year
  Sex: Female

DRUGS (6)
  1. CARFILZOMIB [Suspect]
     Active Substance: CARFILZOMIB
     Indication: Glomerulonephritis membranoproliferative
     Dosage: UNK
     Route: 065
  2. CARFILZOMIB [Suspect]
     Active Substance: CARFILZOMIB
     Indication: Off label use
  3. LENALIDOMIDE [Concomitant]
     Active Substance: LENALIDOMIDE
     Indication: Glomerulonephritis membranoproliferative
     Dosage: UNK
  4. DEXAMETHASONE [Concomitant]
     Active Substance: DEXAMETHASONE
     Indication: Glomerulonephritis membranoproliferative
     Dosage: UNK
  5. DARATUMUMAB [Concomitant]
     Active Substance: DARATUMUMAB
     Indication: Glomerulonephritis membranoproliferative
     Dosage: UNK
  6. TACROLIMUS [Concomitant]
     Active Substance: TACROLIMUS
     Indication: Glomerulonephritis membranoproliferative
     Dosage: UNK

REACTIONS (3)
  - Glomerulonephritis membranoproliferative [Unknown]
  - Drug effective for unapproved indication [Unknown]
  - Off label use [Unknown]
